FAERS Safety Report 9155948 (Version 1)
Quarter: 2013Q1

REPORT INFORMATION
  Report Type: Spontaneous
  Country: US (occurrence: US)
  Receive Date: 20130311
  Receipt Date: 20130311
  Transmission Date: 20140127
  Serious: Yes (Other)
  Sender: FDA-Public Use
  Company Number: US-009507513-1203USA00784

PATIENT
  Sex: Female
  Weight: 69.85 kg

DRUGS (9)
  1. FOSAMAX [Suspect]
     Indication: OSTEOPENIA
     Dosage: 10 MG, QD
     Route: 048
     Dates: start: 2000, end: 20010327
  2. FOSAMAX [Suspect]
     Indication: OSTEOPOROSIS
     Dosage: 70 MG, QW
     Route: 048
     Dates: start: 20010327
  3. FOSAMAX D [Suspect]
     Indication: OSTEOPENIA
     Dosage: 70 MG, QW
     Route: 048
     Dates: start: 2006, end: 2008
  4. FOSAMAX [Suspect]
     Indication: OSTEOPENIA
     Dosage: 70 MG, QW
     Route: 048
     Dates: start: 2008, end: 2009
  5. CALCIUM (UNSPECIFIED) [Concomitant]
  6. VITAMIN E [Concomitant]
  7. ASCORBIC ACID [Concomitant]
  8. MK-9278 [Concomitant]
  9. MK-9039 [Concomitant]

REACTIONS (28)
  - Femur fracture [Unknown]
  - Low turnover osteopathy [Unknown]
  - Foot fracture [Unknown]
  - Foot fracture [Unknown]
  - Foot fracture [Unknown]
  - Tooth disorder [Unknown]
  - Nasopharyngitis [Unknown]
  - Postmenopausal haemorrhage [Unknown]
  - Adnexa uteri cyst [Unknown]
  - Endometrial hyperplasia [Unknown]
  - Uterine leiomyoma [Unknown]
  - Drug intolerance [Unknown]
  - Acne [Unknown]
  - Vaginismus [Unknown]
  - Ovarian cyst [Unknown]
  - Stress [Unknown]
  - Upper respiratory tract infection [Unknown]
  - Atrophic vulvovaginitis [Unknown]
  - Cervical dysplasia [Unknown]
  - Endometriosis [Unknown]
  - Urinary tract infection [Unknown]
  - Jaw fracture [Unknown]
  - Urinary tract infection [Unknown]
  - Cough [Unknown]
  - Dyspareunia [Unknown]
  - Fibrocystic breast disease [Unknown]
  - Endometrial hyperplasia [Unknown]
  - Smear cervix abnormal [Unknown]
